FAERS Safety Report 25386331 (Version 2)
Quarter: 2025Q2

REPORT INFORMATION
  Report Type: Spontaneous
  Country: US (occurrence: US)
  Receive Date: 20250602
  Receipt Date: 20250616
  Transmission Date: 20250716
  Serious: No
  Sender: ALKERMES
  Company Number: US-ALKERMES INC.-ALK-2025-001373

PATIENT
  Age: 41 Year
  Sex: Male
  Weight: 74.376 kg

DRUGS (1)
  1. VIVITROL [Suspect]
     Active Substance: NALTREXONE
     Indication: Alcoholism
     Route: 030
     Dates: start: 2024

REACTIONS (14)
  - Product preparation error [Recovered/Resolved]
  - Product administered by wrong person [Recovered/Resolved]
  - Product physical consistency issue [Recovered/Resolved]
  - Product administration error [Recovered/Resolved]
  - Incorrect dose administered [Recovered/Resolved]
  - Extra dose administered [Recovered/Resolved]
  - Injection site pain [Unknown]
  - Injection site mass [Unknown]
  - Injection site erythema [Unknown]
  - Abdominal pain upper [Recovered/Resolved]
  - Libido decreased [Unknown]
  - Nausea [Unknown]
  - Headache [Recovering/Resolving]
  - Migraine [Recovering/Resolving]

NARRATIVE: CASE EVENT DATE: 20250501
